FAERS Safety Report 7213017-9 (Version None)
Quarter: 2010Q4

REPORT INFORMATION
  Report Type: 
  Country: None (occurrence: None)
  Receive Date: 20101227
  Receipt Date: 20101213
  Transmission Date: 20110411
  Serious: Yes (Other)
  Sender: FDA-Public Use
  Company Number: 2010P1003283

PATIENT
  Age: 71 Year
  Sex: Female
  Weight: 65.7716 kg

DRUGS (7)
  1. FENTANYL-50 [Suspect]
     Indication: PAIN
     Dosage: 50 MCG/HR;PRN; FOR 24 HRS; TDER
     Route: 062
     Dates: start: 20070101
  2. AMBIEN [Concomitant]
  3. LIDOCAINE JELLY [Concomitant]
  4. BENADRYL [Concomitant]
  5. PREVACID [Concomitant]
  6. SINGULAIR [Concomitant]
  7. ALDARA (IMIQUIMOD TOPICAL) [Concomitant]

REACTIONS (8)
  - ABDOMINAL PAIN UPPER [None]
  - DRUG LEVEL INCREASED [None]
  - NAUSEA [None]
  - PRURITUS [None]
  - PULMONARY MASS [None]
  - SINUS CONGESTION [None]
  - SKIN REACTION [None]
  - VOMITING [None]
